FAERS Safety Report 5811158-1 (Version None)
Quarter: 2008Q4

REPORT INFORMATION
  Report Type: 
  Country: None (occurrence: None)
  Receive Date: 20080710
  Receipt Date: 20080630
  Transmission Date: 20090506
  Serious: Yes (Hospitalization, Other)
  Sender: FDA-Public Use
  Company Number: 2007AP001099

PATIENT
  Age: 44 Year
  Sex: Male

DRUGS (54)
  1. PERPHENAZINE [Suspect]
     Indication: ANXIETY
     Dosage: 4 MG; TAB; PO; ;HS;  2MG; TAB; PO; TID; 2 MG; TAB; PO; 5XD
     Route: 048
     Dates: start: 19950922
  2. PERPHENAZINE [Suspect]
     Indication: NAUSEA
     Dosage: 4 MG; TAB; PO; ;HS;  2MG; TAB; PO; TID; 2 MG; TAB; PO; 5XD
     Route: 048
     Dates: start: 19950922
  3. PERPHENAZINE [Suspect]
     Indication: ANXIETY
     Dosage: 4 MG; TAB; PO; ;HS;  2MG; TAB; PO; TID; 2 MG; TAB; PO; 5XD
     Route: 048
     Dates: start: 19961121
  4. PERPHENAZINE [Suspect]
     Indication: NAUSEA
     Dosage: 4 MG; TAB; PO; ;HS;  2MG; TAB; PO; TID; 2 MG; TAB; PO; 5XD
     Route: 048
     Dates: start: 19961121
  5. PERPHENAZINE [Suspect]
     Indication: ANXIETY
     Dosage: 4 MG; TAB; PO; ;HS;  2MG; TAB; PO; TID; 2 MG; TAB; PO; 5XD
     Route: 048
     Dates: start: 19970213
  6. PERPHENAZINE [Suspect]
     Indication: NAUSEA
     Dosage: 4 MG; TAB; PO; ;HS;  2MG; TAB; PO; TID; 2 MG; TAB; PO; 5XD
     Route: 048
     Dates: start: 19970213
  7. IMIPRAMINE HCL [Suspect]
     Dosage: 150 MG; HS, PO
     Route: 048
     Dates: start: 19950922
  8. OXAZEPAM [Suspect]
     Indication: ANXIETY
     Dosage: 15 MG; TAB; PO; TID
     Route: 048
     Dates: start: 19950922
  9. OXAZEPAM [Suspect]
     Indication: ANXIETY
     Dosage: 15 MG; TAB; PO; TID
     Route: 048
     Dates: start: 19951213
  10. CARBAMAZEPINE [Suspect]
     Dosage: 200 MG; TAB; PO
     Route: 048
     Dates: start: 19990908, end: 19991008
  11. CELEXA [Suspect]
     Dosage: 20 MG
     Dates: start: 19990915, end: 19991010
  12. LITHIUM CARBONATE [Suspect]
     Dosage: 750 MG; CAP; PO; 1200 MG; QD;  600 MG; QD;  450 MG; QD
     Route: 048
     Dates: start: 19950329, end: 19960701
  13. LITHIUM CARBONATE [Suspect]
     Dosage: 750 MG; CAP; PO; 1200 MG; QD;  600 MG; QD;  450 MG; QD
     Route: 048
     Dates: start: 19960702, end: 19960801
  14. LITHIUM CARBONATE [Suspect]
     Dosage: 750 MG; CAP; PO; 1200 MG; QD;  600 MG; QD;  450 MG; QD
     Route: 048
     Dates: start: 19960801, end: 19970301
  15. LITHIUM CARBONATE [Suspect]
     Dosage: 750 MG; CAP; PO; 1200 MG; QD;  600 MG; QD;  450 MG; QD
     Route: 048
     Dates: start: 19970301, end: 19970801
  16. LITHIUM CARBONATE [Suspect]
     Dosage: 600 MG; QD
     Dates: start: 19970801, end: 19980501
  17. RESTORIL [Suspect]
     Dosage: 15 MG; CAP; PO; QD
     Route: 048
  18. ZYPREXA [Suspect]
     Dosage: 5 MG; 10 MG
     Dates: start: 19981223
  19. ATROPINE [Concomitant]
  20. ALPRAZOLAM [Concomitant]
  21. DOXYCYCLINE [Concomitant]
  22. TESTOSTERONE [Concomitant]
  23. CISAPRIDE (CISAPRIDE) [Concomitant]
  24. DEXAMETHASONE TAB [Concomitant]
  25. NEOMYCIN SULFATE [Concomitant]
  26. POLYMYXIN E (POLYMYXIN B) [Concomitant]
  27. ACETAMINOPHEN [Concomitant]
  28. CODEINE PHOSPHATE (CODEINE PHOSPHATE) [Concomitant]
  29. CAFFEINE CITRATE [Concomitant]
  30. DOXEPIN HYDROCHLORIDE (DOXEPIN HYDROCHLORIDE) [Concomitant]
  31. DIAZEPAM [Concomitant]
  32. RANITIDINE [Concomitant]
  33. OMEPRAZOLE [Concomitant]
  34. VENLAFAXINE HYDROCHLORIDE (VENLAEAXINE HYDROCHLORIDE) [Concomitant]
  35. CLONAZEPAM [Concomitant]
  36. METHOTRIMEPRAZINE (METHOTRIMEPRAZINE) [Concomitant]
  37. LORAZEPAM [Concomitant]
  38. THIORIDAZINE HCL [Concomitant]
  39. VENLAFAXINE HCL [Concomitant]
  40. PAROXETINE HCL [Concomitant]
  41. CHLORDIAZEPDXIDE (CHLORDIAZEPDXIDE) [Concomitant]
  42. VALPROATE SODIUM [Concomitant]
  43. CHLORPROMAZINE [Concomitant]
  44. RISPERDAL [Concomitant]
  45. ZOPICLONE (ZOPICLONE) [Concomitant]
  46. TRIMIPRAMINE MALEATE [Concomitant]
  47. METOPROLOL TARTRATE [Concomitant]
  48. PROCHLORPERAZINE MALEATE [Concomitant]
  49. CLONIDINE [Concomitant]
  50. TRAZODONE HCL [Concomitant]
  51. AMITRIPTLINE HYDROCHLORIDE TAB [Concomitant]
  52. HALOPERIDOL [Concomitant]
  53. BENZTROPINE MESYLATE [Concomitant]
  54. NEFAZODONE HCL [Concomitant]

REACTIONS (14)
  - AMNESIA [None]
  - ANGER [None]
  - ASPERGER'S DISORDER [None]
  - COELIAC DISEASE [None]
  - COGNITIVE DISORDER [None]
  - CONSTIPATION [None]
  - DEPRESSION [None]
  - DIARRHOEA [None]
  - FLUSHING [None]
  - MENTAL IMPAIRMENT [None]
  - NAUSEA [None]
  - POST-TRAUMATIC STRESS DISORDER [None]
  - SEDATION [None]
  - SEROTONIN SYNDROME [None]
